FAERS Safety Report 24743316 (Version 1)
Quarter: 2024Q4

REPORT INFORMATION
  Report Type: Spontaneous
  Country: NL (occurrence: NL)
  Receive Date: 20241217
  Receipt Date: 20241217
  Transmission Date: 20250114
  Serious: Yes (Life-Threatening, Hospitalization)
  Sender: ACCORD
  Company Number: None

PATIENT
  Age: 64 Year
  Sex: Male
  Weight: 111.5 kg

DRUGS (4)
  1. SPIRONOLACTONE [Suspect]
     Active Substance: SPIRONOLACTONE
     Indication: Hypertension
     Dosage: 1X PER DAY 1 PIECE
     Dates: start: 20240723, end: 20240812
  2. HYDROCHLOROTHIAZIDE [Suspect]
     Active Substance: HYDROCHLOROTHIAZIDE
     Indication: Hypertension
     Dosage: 1X PER DAY 1 PIECE
     Dates: start: 20240721, end: 20240813
  3. PERINDOPRIL [Suspect]
     Active Substance: PERINDOPRIL
     Indication: Hypertension
     Dosage: 1X PER DAY 1 PIECE
     Dates: start: 20240725, end: 20240813
  4. DAPAGLIFLOZIN [Concomitant]
     Active Substance: DAPAGLIFLOZIN
     Dosage: 1D(1) ST

REACTIONS (2)
  - Acute kidney injury [Recovering/Resolving]
  - Acidosis [Recovering/Resolving]
